FAERS Safety Report 7804470-8 (Version None)
Quarter: 2011Q4

REPORT INFORMATION
  Report Type: 
  Country: None (occurrence: None)
  Receive Date: 20111010
  Receipt Date: 20111003
  Transmission Date: 20120403
  Serious: Yes (Hospitalization, Other)
  Sender: FDA-Public Use
  Company Number: US-AMGEN-USASP2011042728

PATIENT
  Age: 57 Year
  Sex: Female

DRUGS (1)
  1. ENBREL [Suspect]
     Indication: RHEUMATOID ARTHRITIS
     Dosage: 50 MG, QWK
     Dates: start: 20080101

REACTIONS (7)
  - DYSSTASIA [None]
  - DIZZINESS [None]
  - DYSPNOEA [None]
  - ADRENAL INSUFFICIENCY [None]
  - MEMORY IMPAIRMENT [None]
  - PNEUMONIA [None]
  - HEART RATE INCREASED [None]
